FAERS Safety Report 9690373 (Version 1)
Quarter: 2013Q4

REPORT INFORMATION
  Report Type: Spontaneous
  Country: AU (occurrence: None)
  Receive Date: 20131113
  Receipt Date: 20131113
  Transmission Date: 20140711
  Serious: Yes (Other)
  Sender: FDA-Public Use
  Company Number: ABR_01246_2013

PATIENT
  Sex: Female

DRUGS (2)
  1. ERYTHROMYCIN (ERYTHROMYCIN) [Suspect]
     Indication: PRODUCT USED FOR UNKNOWN INDICATION
     Dosage: DF
  2. CARBAMAZEPINE (CARBAMAZEPINE) [Suspect]
     Dosage: DF

REACTIONS (3)
  - Dizziness [None]
  - Visual impairment [None]
  - Drug interaction [None]
